FAERS Safety Report 8309489-9 (Version None)
Quarter: 2012Q2

REPORT INFORMATION
  Report Type: 
  Country: None (occurrence: None)
  Receive Date: 20120425
  Receipt Date: 20120418
  Transmission Date: 20120825
  Serious: No
  Sender: FDA-Public Use
  Company Number: US-PFIZER INC-2012096837

PATIENT
  Sex: Female
  Weight: 159 kg

DRUGS (1)
  1. SOMAVERT [Suspect]
     Indication: BLOOD GROWTH HORMONE INCREASED
     Dosage: 10 MG, DAILY
     Dates: start: 20120401

REACTIONS (4)
  - INJECTION SITE REACTION [None]
  - DIARRHOEA [None]
  - INJECTION SITE ERYTHEMA [None]
  - INJECTION SITE PRURITUS [None]
